FAERS Safety Report 9229186 (Version 1)
Quarter: 2013Q2

REPORT INFORMATION
  Report Type: Spontaneous
  Country: US (occurrence: US)
  Receive Date: 20130412
  Receipt Date: 20130412
  Transmission Date: 20140414
  Serious: No
  Sender: FDA-Public Use
  Company Number: US-ASTELLAS-2012US010423

PATIENT
  Age: 18 Year
  Sex: Male

DRUGS (1)
  1. PROGRAF [Suspect]
     Indication: TRANSPLANT
     Dosage: 1MG IN MORNING AND 2 MG IN EVENING, UID/QD
     Route: 048
     Dates: start: 20110419

REACTIONS (3)
  - Dry skin [Recovered/Resolved]
  - Seborrhoea [Recovered/Resolved]
  - Dermatitis [Recovered/Resolved]
